FAERS Safety Report 5705725-3 (Version None)
Quarter: 2008Q2

REPORT INFORMATION
  Report Type: 
  Country: None (occurrence: None)
  Receive Date: 20080415
  Receipt Date: 20080414
  Transmission Date: 20081010
  Serious: Yes (Hospitalization)
  Sender: FDA-Public Use
  Company Number: B0509017A

PATIENT
  Age: 61 Year
  Sex: Female

DRUGS (14)
  1. HYCAMTIN [Suspect]
     Dosage: 1MGM2 PER DAY
     Route: 042
     Dates: start: 20071126, end: 20080201
  2. CISPLATIN [Suspect]
     Dosage: 60MGM2 PER DAY
     Route: 042
     Dates: start: 20071130, end: 20080201
  3. FILGRASTIM [Concomitant]
     Dosage: 75MCG PER DAY
     Route: 058
     Dates: start: 20071201
  4. AMOXICILLIN + CLAVULANATE POTASSIUM [Concomitant]
     Dosage: 750MG PER DAY
     Route: 048
     Dates: start: 20071121, end: 20071124
  5. CHERRY BARK EXTRACT + CODEINE [Concomitant]
     Dosage: 2ML PER DAY
     Dates: start: 20071126, end: 20071202
  6. SENNOSIDE [Concomitant]
     Route: 048
     Dates: start: 20071127, end: 20071203
  7. ONDANSETRON [Concomitant]
     Dosage: 4MG PER DAY
     Route: 048
     Dates: start: 20071229, end: 20080102
  8. DEXAMETHASONE SODIUM PHOSPHATE [Concomitant]
     Dates: start: 20071126, end: 20080205
  9. AZASETRON HYDROCHLORIDE [Concomitant]
     Dosage: 10MG PER DAY
     Dates: start: 20071126, end: 20080201
  10. METOCLOPRAMIDE [Concomitant]
     Dosage: 10MG PER DAY
     Dates: start: 20071126, end: 20080131
  11. FUROSEMIDE [Concomitant]
     Dosage: 20MG PER DAY
     Dates: start: 20071130, end: 20080203
  12. HYDROCORTISONE SODIUM SUCCINATE [Concomitant]
     Dosage: 100MG PER DAY
     Dates: start: 20071201, end: 20071201
  13. RINGERS ACETATE [Concomitant]
     Dates: start: 20071130, end: 20080205
  14. MAINTENANCE FLUID [Concomitant]
     Dosage: 1000ML PER DAY
     Dates: start: 20071201, end: 20080205

REACTIONS (26)
  - ALANINE AMINOTRANSFERASE INCREASED [None]
  - ALOPECIA [None]
  - ASPARTATE AMINOTRANSFERASE INCREASED [None]
  - BACK PAIN [None]
  - BLOOD ALBUMIN DECREASED [None]
  - BLOOD ALKALINE PHOSPHATASE INCREASED [None]
  - BLOOD CHLORIDE DECREASED [None]
  - BLOOD POTASSIUM INCREASED [None]
  - BLOOD SODIUM DECREASED [None]
  - CONSTIPATION [None]
  - EPISTAXIS [None]
  - HAEMOGLOBIN DECREASED [None]
  - HAEMORRHAGE [None]
  - INJECTION SITE INDURATION [None]
  - NAUSEA [None]
  - NEUTROPHIL COUNT DECREASED [None]
  - PLATELET COUNT DECREASED [None]
  - PLATELET COUNT INCREASED [None]
  - PROTEIN TOTAL DECREASED [None]
  - PROTEIN URINE PRESENT [None]
  - RED BLOOD CELL COUNT DECREASED [None]
  - RHINORRHOEA [None]
  - VOMITING [None]
  - WEIGHT DECREASED [None]
  - WHITE BLOOD CELL COUNT DECREASED [None]
  - WHITE BLOOD CELL COUNT INCREASED [None]
